FAERS Safety Report 26045265 (Version 1)
Quarter: 2025Q4

REPORT INFORMATION
  Report Type: Spontaneous
  Country: US (occurrence: US)
  Receive Date: 20251114
  Receipt Date: 20251114
  Transmission Date: 20260118
  Serious: Yes (Hospitalization, Other)
  Sender: Kenvue
  Company Number: US-PFIZERINC-9624181

PATIENT
  Age: 40 Year
  Sex: Female

DRUGS (6)
  1. TYLENOL [Suspect]
     Active Substance: ACETAMINOPHEN
     Indication: Pyrexia
     Dosage: UNK
     Route: 048
     Dates: start: 199612
  2. AZITHROMYCIN [Suspect]
     Active Substance: AZITHROMYCIN
     Indication: Upper respiratory tract infection
     Dosage: UNK
     Route: 048
     Dates: start: 199612, end: 199612
  3. AZITHROMYCIN [Suspect]
     Active Substance: AZITHROMYCIN
     Indication: Oropharyngeal pain
  4. FLOXIN [Suspect]
     Active Substance: OFLOXACIN
     Indication: Upper respiratory tract infection
     Dosage: UNK
     Route: 048
     Dates: start: 199612, end: 19961216
  5. ADVIL [Concomitant]
     Active Substance: IBUPROFEN
     Indication: Product used for unknown indication
     Route: 048
  6. SOMA [Concomitant]
     Active Substance: CARISOPRODOL
     Indication: Product used for unknown indication
     Dosage: UNK
     Route: 048
     Dates: start: 199612

REACTIONS (3)
  - Haemolytic anaemia [Unknown]
  - Glucose-6-phosphate dehydrogenase deficiency [Unknown]
  - Methaemoglobinaemia [Unknown]

NARRATIVE: CASE EVENT DATE: 19961201
